FAERS Safety Report 4492949-9 (Version None)
Quarter: 2004Q4

REPORT INFORMATION
  Report Type: 
  Country: None (occurrence: None)
  Receive Date: 20041102
  Receipt Date: 20041011
  Transmission Date: 20050328
  Serious: Yes (Hospitalization, Disabling)
  Sender: FDA-Public Use
  Company Number: A02200403046

PATIENT
  Age: 73 Year
  Sex: Male

DRUGS (2)
  1. ELOXATINE - (OXALIPLATIN) - SOLUTION - 5 MG [Suspect]
     Dosage: 130 MG/M2 OTHER INTRAVENOUS NOS
     Route: 042
     Dates: start: 20040916, end: 20040916
  2. TOMUDEX (RALTITREXED) [Concomitant]

REACTIONS (8)
  - CSF PROTEIN INCREASED [None]
  - DIFFICULTY IN WALKING [None]
  - DYSAESTHESIA [None]
  - GUILLAIN-BARRE SYNDROME [None]
  - HYPOREFLEXIA [None]
  - NEUROTOXICITY [None]
  - PARAESTHESIA [None]
  - POLYNEUROPATHY [None]
